FAERS Safety Report 8202202-5 (Version None)
Quarter: 2012Q1

REPORT INFORMATION
  Report Type: 
  Country: None (occurrence: None)
  Receive Date: 20120312
  Receipt Date: 20120305
  Transmission Date: 20120608
  Serious: Yes (Hospitalization)
  Sender: FDA-Public Use
  Company Number: US-ALEXION PHARMACEUTICALS INC.-A201200315

PATIENT
  Sex: Female

DRUGS (9)
  1. ZOLOFT [Concomitant]
     Indication: MENOPAUSE
     Dosage: 50 MG, QD
     Route: 048
  2. IMITREX [Concomitant]
     Indication: MIGRAINE
     Dosage: UNK
  3. NEXIUM [Concomitant]
     Indication: GASTROOESOPHAGEAL REFLUX DISEASE
     Dosage: 40 MG, QD
     Route: 048
  4. KEPPRA [Concomitant]
     Indication: CONVULSION
     Dosage: 750 MG QAM/1500 MG QPM
     Route: 048
  5. SOLIRIS [Suspect]
     Indication: PAROXYSMAL NOCTURNAL HAEMOGLOBINURIA
     Dosage: 600 MG, Q2W
     Route: 042
     Dates: start: 20070101, end: 20070101
  6. FOLIC ACID [Concomitant]
     Dosage: 1 MG, QD
     Route: 048
  7. MAGNESIUM OXIDE [Concomitant]
     Dosage: 400 MG, QD
     Route: 048
  8. SOLIRIS [Suspect]
     Dosage: 900 MG, Q2W
     Route: 042
     Dates: start: 20070101
  9. XANAX [Concomitant]
     Indication: ANXIETY
     Dosage: 2 MG, BID, PRN
     Route: 048

REACTIONS (4)
  - INTERNATIONAL NORMALISED RATIO INCREASED [None]
  - SUBARACHNOID HAEMORRHAGE [None]
  - CEREBROVASCULAR ACCIDENT [None]
  - VENOUS THROMBOSIS [None]
